FAERS Safety Report 4356623-1 (Version None)
Quarter: 2004Q2

REPORT INFORMATION
  Report Type: 
  Country: None (occurrence: None)
  Receive Date: 20040506
  Receipt Date: 20040427
  Transmission Date: 20050107
  Serious: Yes (Disabling)
  Sender: FDA-Public Use
  Company Number: 2004023670

PATIENT
  Age: 73 Year
  Sex: Male
  Weight: 55 kg

DRUGS (2)
  1. CYCLOKAPRON (TRANEXAMIC ACID) [Suspect]
     Indication: PLASMIN INHIBITOR DECREASED
     Dosage: 1 - 250 MG TAB DAILY, THEN 500 MG DAILY, ORAL
     Route: 048
     Dates: start: 20040307, end: 20040315
  2. DESMOPRESSIN ACETATE (DESMOPRESSIN ACETATE) [Concomitant]

REACTIONS (3)
  - CANDIDIASIS [None]
  - CLOSTRIDIAL INFECTION [None]
  - DIARRHOEA [None]
